FAERS Safety Report 11862272 (Version 1)
Quarter: 2015Q4

REPORT INFORMATION
  Report Type: Report from Study
  Country: CN (occurrence: CN)
  Receive Date: 20151222
  Receipt Date: 20151222
  Transmission Date: 20160305
  Serious: Yes (Other)
  Sender: FDA-Public Use
  Company Number: CN-ROCHE-1669485

PATIENT
  Age: 64 Year
  Sex: Male
  Weight: 63 kg

DRUGS (3)
  1. AVASTIN [Suspect]
     Active Substance: BEVACIZUMAB
     Indication: RECTAL CANCER
     Route: 041
     Dates: start: 20141029
  2. AVASTIN [Suspect]
     Active Substance: BEVACIZUMAB
     Indication: METASTASES TO LIVER
  3. AVASTIN [Suspect]
     Active Substance: BEVACIZUMAB
     Indication: METASTASES TO LUNG

REACTIONS (3)
  - Urethral obstruction [Unknown]
  - Pyrexia [Unknown]
  - Urinary bladder rupture [Unknown]

NARRATIVE: CASE EVENT DATE: 201511
